FAERS Safety Report 7218858-X (Version None)
Quarter: 2011Q1

REPORT INFORMATION
  Report Type: 
  Country: None (occurrence: None)
  Receive Date: 20110110
  Receipt Date: 20110105
  Transmission Date: 20110831
  Serious: Yes (Hospitalization, Other)
  Sender: FDA-Public Use
  Company Number: JP-ABBOTT-10P-087-0693467-00

PATIENT
  Age: 32 Year
  Sex: Male

DRUGS (16)
  1. INDAPAMIDE [Concomitant]
     Indication: HYPERTENSION
     Dates: start: 20090717, end: 20090813
  2. EPZICOM [Concomitant]
     Indication: HIV INFECTION
     Route: 048
     Dates: start: 20090213, end: 20090216
  3. RIFABUTIN [Concomitant]
     Indication: MYCOBACTERIUM AVIUM COMPLEX INFECTION
     Route: 048
     Dates: start: 20090516
  4. PENTAMIDINE ISETHIONATE [Concomitant]
     Indication: PROPHYLAXIS
  5. ETHAMBUTOL HYDROCHLORIDE [Concomitant]
     Indication: MYCOBACTERIUM AVIUM COMPLEX INFECTION
     Dates: start: 20090516
  6. NIFEDIPINE [Concomitant]
     Indication: HYPERTENSION
     Dates: start: 20091218
  7. PREZISTA [Suspect]
     Indication: HIV INFECTION
     Dosage: 1200 MG DAILY
     Route: 048
     Dates: start: 20090424
  8. TRUVADA [Suspect]
     Indication: HIV INFECTION
     Route: 048
     Dates: start: 20090205, end: 20090209
  9. PENTAMIDINE ISETHIONATE [Concomitant]
     Indication: PNEUMOCYSTIS JIROVECI PNEUMONIA
     Route: 055
     Dates: start: 20090602
  10. RITONAVIR [Suspect]
     Indication: HIV INFECTION
     Dosage: 200 MG DAILY
     Route: 048
     Dates: start: 20090424
  11. RIFABUTIN [Concomitant]
     Indication: PROPHYLAXIS
  12. INDAPAMIDE [Concomitant]
     Dates: start: 20090814
  13. KALETRA [Suspect]
     Indication: HIV INFECTION
     Dosage: 4 TABLETS DAILY
     Route: 048
     Dates: start: 20090210, end: 20090220
  14. CLARITHROMYCIN [Concomitant]
     Indication: MYCOBACTERIUM AVIUM COMPLEX INFECTION
     Dates: start: 20090516
  15. CLARITHROMYCIN [Concomitant]
     Indication: PROPHYLAXIS
  16. ISENTRESS [Concomitant]
     Indication: HIV INFECTION
     Dosage: 800 MG DAILY
     Route: 048
     Dates: start: 20090430

REACTIONS (8)
  - PYREXIA [None]
  - RASH [None]
  - BLOOD TRIGLYCERIDES INCREASED [None]
  - GASTRIC ULCER [None]
  - BLOOD URIC ACID INCREASED [None]
  - LYMPHADENOPATHY [None]
  - ATYPICAL MYCOBACTERIAL INFECTION [None]
  - CYTOMEGALOVIRUS CHORIORETINITIS [None]
